FAERS Safety Report 5065813-4 (Version None)
Quarter: 2006Q3

REPORT INFORMATION
  Report Type: 
  Country: None (occurrence: None)
  Receive Date: 20060731
  Receipt Date: 20060726
  Transmission Date: 20061208
  Serious: Yes (Death)
  Sender: FDA-Public Use
  Company Number: IT-SANOFI-SYNTHELABO-A06200600251

PATIENT
  Sex: Male

DRUGS (4)
  1. TROPISETRON [Concomitant]
     Indication: PREMEDICATION
     Route: 065
     Dates: start: 20060710, end: 20060710
  2. RANITIDINE [Concomitant]
     Indication: PREMEDICATION
     Route: 065
     Dates: start: 20060710, end: 20060710
  3. DEXAMETHASONE TAB [Concomitant]
     Indication: PREMEDICATION
     Route: 065
     Dates: start: 20060710, end: 20060710
  4. ELOXATIN [Suspect]
     Indication: COLON CANCER
     Route: 041
     Dates: start: 20060710, end: 20060710

REACTIONS (3)
  - GINGIVAL BLEEDING [None]
  - HAEMATURIA [None]
  - THROMBOCYTOPENIA [None]
